FAERS Safety Report 12651464 (Version 1)
Quarter: 2016Q3

REPORT INFORMATION
  Report Type: Report from Study
  Country: US (occurrence: US)
  Receive Date: 20160815
  Receipt Date: 20160815
  Transmission Date: 20161109
  Serious: No
  Sender: FDA-Public Use
  Company Number: PHEH2016US020344

PATIENT
  Sex: Female

DRUGS (2)
  1. AFINITOR [Suspect]
     Active Substance: EVEROLIMUS
     Indication: ANGIOMYOLIPOMA
     Dosage: 10 MG, QD
     Route: 048
     Dates: start: 20160214
  2. AFINITOR [Suspect]
     Active Substance: EVEROLIMUS
     Dosage: 12.5 MG, QD
     Route: 048

REACTIONS (2)
  - Menstruation irregular [Not Recovered/Not Resolved]
  - Oligomenorrhoea [Unknown]
